FAERS Safety Report 11132781 (Version 2)
Quarter: 2015Q2

REPORT INFORMATION
  Report Type: Report from Study
  Country: CA (occurrence: CA)
  Receive Date: 20150522
  Receipt Date: 20150603
  Transmission Date: 20150821
  Serious: Yes (Death, Hospitalization, Other)
  Sender: FDA-Public Use
  Company Number: PHHY2015CA058440

PATIENT
  Age: 67 Year
  Sex: Male

DRUGS (1)
  1. SANDOSTATIN [Suspect]
     Active Substance: OCTREOTIDE ACETATE
     Indication: INTESTINAL OBSTRUCTION
     Dosage: 50 MCG, BID
     Route: 058
     Dates: start: 20150507

REACTIONS (5)
  - Death [Fatal]
  - Faecal vomiting [Unknown]
  - Abnormal faeces [Unknown]
  - Off label use [Unknown]
  - Bowel movement irregularity [Unknown]

NARRATIVE: CASE EVENT DATE: 20150507
